FAERS Safety Report 6186315-8 (Version None)
Quarter: 2009Q2

REPORT INFORMATION
  Report Type: 
  Country: None (occurrence: None)
  Receive Date: 20090511
  Receipt Date: 20090504
  Transmission Date: 20091009
  Serious: Yes (Hospitalization)
  Sender: FDA-Public Use
  Company Number: PHHO2008NL13955

PATIENT
  Sex: Female
  Weight: 71 kg

DRUGS (2)
  1. CERTICAN [Suspect]
     Indication: CHRONIC ALLOGRAFT NEPHROPATHY
     Dosage: UNK
     Route: 048
     Dates: start: 20080413, end: 20081104
  2. PREDNISOLONE [Suspect]
     Indication: CHRONIC ALLOGRAFT NEPHROPATHY

REACTIONS (1)
  - MELAENA [None]
